FAERS Safety Report 5319164-0 (Version None)
Quarter: 2007Q1

REPORT INFORMATION
  Report Type: 
  Country: None (occurrence: None)
  Receive Date: 20070202
  Receipt Date: 20060816
  Transmission Date: 20070707
  Serious: No
  Sender: FDA-Public Use
  Company Number: 254791

PATIENT
  Age: 44 Year
  Sex: Male
  Weight: 121.5 kg

DRUGS (3)
  1. NOVOLOG [Suspect]
     Indication: DIABETES MELLITUS INSULIN-DEPENDENT
     Dosage: 29.3 IU, + SLIDING SCALE, SUBCUTAN.-PUMP
     Route: 058
     Dates: start: 19950101
  2. LIPITOR [Concomitant]
  3. NEXIUM (ESOMEPRAZOLEM MAGNESIUM) [Concomitant]

REACTIONS (1)
  - DIABETIC KETOACIDOSIS [None]
